FAERS Safety Report 8677654 (Version 3)
Quarter: 2013Q2

REPORT INFORMATION
  Report Type: Spontaneous
  Country: DK (occurrence: DK)
  Receive Date: 20120723
  Receipt Date: 20130612
  Transmission Date: 20140414
  Serious: Yes (Other)
  Sender: FDA-Public Use
  Company Number: DK-PFIZER INC-2012167321

PATIENT
  Sex: Female

DRUGS (1)
  1. CYTOTEC [Suspect]
     Indication: LABOUR INDUCTION
     Dosage: 25 UG, SINGLE
     Route: 064
     Dates: start: 201205

REACTIONS (2)
  - Maternal exposure timing unspecified [Unknown]
  - Apgar score low [Unknown]
